FAERS Safety Report 11741639 (Version 1)
Quarter: 2015Q4

REPORT INFORMATION
  Report Type: Spontaneous
  Country: US (occurrence: US)
  Receive Date: 20151116
  Receipt Date: 20151116
  Transmission Date: 20160304
  Serious: Yes (Other)
  Sender: FDA-Public Use
  Company Number: US-ACCORD-035418

PATIENT
  Age: 45 Year
  Sex: Male

DRUGS (1)
  1. PACLITAXEL/PACLITAXEL LIPOSOME [Suspect]
     Active Substance: PACLITAXEL
     Indication: ANGIOSARCOMA

REACTIONS (4)
  - Deafness [Unknown]
  - Neuropathy peripheral [Unknown]
  - Rhinitis [Unknown]
  - Off label use [Unknown]
